FAERS Safety Report 22245710 (Version 5)
Quarter: 2023Q2

REPORT INFORMATION
  Report Type: Spontaneous
  Country: US (occurrence: US)
  Receive Date: 20230424
  Receipt Date: 20230531
  Transmission Date: 20230721
  Serious: No
  Sender: FDA-Public Use
  Company Number: US-BIOGEN-2019BI00713363

PATIENT
  Age: 58 Year
  Sex: Female

DRUGS (5)
  1. TECFIDERA [Suspect]
     Active Substance: DIMETHYL FUMARATE
     Indication: Multiple sclerosis
     Route: 050
     Dates: start: 20150409, end: 202304
  2. TECFIDERA [Suspect]
     Active Substance: DIMETHYL FUMARATE
     Route: 050
     Dates: start: 20151207, end: 20161005
  3. TECFIDERA [Suspect]
     Active Substance: DIMETHYL FUMARATE
     Route: 050
     Dates: start: 20150409, end: 20230325
  4. WELLBUTRIN SR [Concomitant]
     Active Substance: BUPROPION HYDROCHLORIDE
     Route: 050
  5. LEVOTHYROXINE SODIUM [Concomitant]
     Active Substance: LEVOTHYROXINE SODIUM
     Route: 050

REACTIONS (11)
  - Cataract [Not Recovered/Not Resolved]
  - Memory impairment [Unknown]
  - Mobility decreased [Unknown]
  - Peroneal nerve palsy [Unknown]
  - Influenza like illness [Recovered/Resolved]
  - Abdominal discomfort [Recovered/Resolved]
  - Hot flush [Unknown]
  - Hypersensitivity [Unknown]
  - Pruritus [Unknown]
  - Erythema [Recovered/Resolved]
  - Flushing [Recovered/Resolved]

NARRATIVE: CASE EVENT DATE: 20150401
